FAERS Safety Report 5888411-9 (Version None)
Quarter: 2008Q3

REPORT INFORMATION
  Report Type: 
  Country: None (occurrence: None)
  Receive Date: 20080918
  Receipt Date: 20080910
  Transmission Date: 20090109
  Serious: Yes (Death, Hospitalization)
  Sender: FDA-Public Use
  Company Number: CA-ABBOTT-06P-028-0347202-00

PATIENT
  Sex: Male
  Weight: 78 kg

DRUGS (28)
  1. RITONAVIR SOFT GELATIN CAPSULES [Suspect]
     Indication: HIV INFECTION
     Route: 048
     Dates: start: 20060509, end: 20060908
  2. RITONAVIR SOFT GELATIN CAPSULES [Suspect]
     Route: 048
     Dates: start: 20061201, end: 20070425
  3. TMC125 (BLINDED) [Concomitant]
     Indication: HIV INFECTION
     Route: 048
     Dates: start: 20060509, end: 20060902
  4. TMC125 (BLINDED) [Concomitant]
     Dates: start: 20061201, end: 20070425
  5. ZIDOVUDINE [Concomitant]
     Indication: DRUG USE FOR UNKNOWN INDICATION
     Route: 048
     Dates: start: 20060509, end: 20060901
  6. TMC114 [Concomitant]
     Indication: HIV INFECTION
     Route: 048
     Dates: start: 20060509, end: 20060902
  7. VIREAD [Concomitant]
     Indication: HIV INFECTION
     Route: 048
     Dates: start: 20060509, end: 20060901
  8. FUZEON [Concomitant]
     Indication: HIV INFECTION
     Route: 058
     Dates: start: 20060509, end: 20060901
  9. METHYLPHENIDATE HCL [Concomitant]
     Indication: COGNITIVE DISORDER
     Route: 048
  10. ZITHROMAX [Concomitant]
     Indication: PROPHYLAXIS
     Route: 048
  11. PENTAMIDINE [Concomitant]
     Indication: ANTIBIOTIC PROPHYLAXIS
     Route: 055
  12. ACETAMINOPHEN [Concomitant]
     Indication: HEADACHE
     Route: 048
  13. ACETAMINOPHEN [Concomitant]
     Indication: MIGRAINE
  14. IMODIUM [Concomitant]
     Indication: DIARRHOEA
     Route: 048
  15. IBUPROFEN [Concomitant]
     Indication: BACK PAIN
     Route: 048
  16. ROBAXISAL COMPUESTO [Concomitant]
     Indication: BACK PAIN
     Route: 048
  17. ALBUTEROL SPIROS [Concomitant]
     Indication: ASTHMA
     Route: 055
  18. BUDESONIDE [Concomitant]
     Indication: ASTHMA
     Route: 055
  19. PSYLLIUM HYDROPHILIC MUCILLOID [Concomitant]
     Indication: DRUG USE FOR UNKNOWN INDICATION
     Route: 048
     Dates: start: 20060509
  20. LOMOTIL [Concomitant]
     Indication: DRUG USE FOR UNKNOWN INDICATION
     Route: 048
     Dates: start: 20060523
  21. COTAZYM 8 EC [Concomitant]
     Indication: DIARRHOEA
     Route: 048
     Dates: start: 20060711
  22. CODEINE SUL TAB [Concomitant]
     Indication: DIARRHOEA
     Route: 048
     Dates: start: 20060808
  23. NYSTATIN [Concomitant]
     Indication: ANTIFUNGAL PROPHYLAXIS
     Route: 061
     Dates: start: 20060705
  24. CALCIUM GLUCONATE [Concomitant]
     Indication: DIARRHOEA
     Route: 048
     Dates: start: 20060808
  25. BOOST [Concomitant]
     Indication: MEDICAL DIET
     Route: 048
     Dates: start: 20060704
  26. POTASSIUM CHLORIDE [Concomitant]
     Indication: HYPOKALAEMIA
     Route: 048
     Dates: start: 20060812
  27. DARUNAVIR [Concomitant]
     Indication: HIV INFECTION
     Dates: start: 20061201, end: 20070425
  28. RALTEGRAVIR [Concomitant]
     Indication: HIV INFECTION
     Dates: start: 20061201, end: 20070425

REACTIONS (5)
  - CYTOMEGALOVIRUS ENTERITIS [None]
  - DIARRHOEA [None]
  - ELECTROLYTE IMBALANCE [None]
  - MYCOBACTERIUM AVIUM COMPLEX INFECTION [None]
  - RENAL FAILURE [None]
